FAERS Safety Report 19116408 (Version 1)
Quarter: 2021Q2

REPORT INFORMATION
  Report Type: Spontaneous
  Country: CN (occurrence: CN)
  Receive Date: 20210410
  Receipt Date: 20210410
  Transmission Date: 20210717
  Serious: Yes (Other)
  Sender: FDA-Public Use
  Company Number: CN-ROCHE-2339761

PATIENT
  Age: 66 Year
  Sex: Male

DRUGS (9)
  1. XELODA [Suspect]
     Active Substance: CAPECITABINE
     Dosage: 12 CYCLES
     Route: 048
     Dates: start: 20180822
  2. IRINOTECAN [Suspect]
     Active Substance: IRINOTECAN
     Dosage: 6 CYCLES
     Route: 065
     Dates: start: 20180822, end: 20190606
  3. CALCIUM FOLINATE [Suspect]
     Active Substance: LEUCOVORIN CALCIUM
     Indication: ADENOCARCINOMA OF COLON
     Dosage: 10 CYCLES
     Route: 065
     Dates: start: 20170727, end: 20180310
  4. OXALIPLATIN. [Suspect]
     Active Substance: OXALIPLATIN
     Indication: ADENOCARCINOMA OF COLON
     Dosage: 6 CYCLES
     Route: 065
     Dates: start: 20160817, end: 20170118
  5. XELODA [Suspect]
     Active Substance: CAPECITABINE
     Indication: ADENOCARCINOMA OF COLON
     Dosage: 6 CYCLES
     Route: 048
     Dates: start: 20160817, end: 20170118
  6. BEVACIZUMAB. [Suspect]
     Active Substance: BEVACIZUMAB
     Dosage: 12 CYCLES
     Route: 065
     Dates: start: 20180822
  7. 5?FLUOROURACIL [Suspect]
     Active Substance: FLUOROURACIL
     Indication: ADENOCARCINOMA OF COLON
     Dosage: 10 CYCLES
     Route: 065
     Dates: start: 20170727, end: 20180310
  8. BEVACIZUMAB. [Suspect]
     Active Substance: BEVACIZUMAB
     Indication: ADENOCARCINOMA OF COLON
     Dosage: 6 CYCLES
     Route: 065
     Dates: start: 20180410, end: 20180801
  9. IRINOTECAN [Suspect]
     Active Substance: IRINOTECAN
     Indication: ADENOCARCINOMA OF COLON
     Dosage: 10 CYCLES
     Route: 065
     Dates: start: 20170727, end: 20180310

REACTIONS (3)
  - Diarrhoea [Unknown]
  - Gastrointestinal disorder [Unknown]
  - Haematotoxicity [Unknown]

NARRATIVE: CASE EVENT DATE: 2018
